FAERS Safety Report 7312974-X (Version None)
Quarter: 2011Q1

REPORT INFORMATION
  Report Type: 
  Country: None (occurrence: None)
  Receive Date: 20110224
  Receipt Date: 20110209
  Transmission Date: 20110831
  Serious: Yes (Hospitalization, Other)
  Sender: FDA-Public Use
  Company Number: US-AMGEN-USASP2010010173

PATIENT
  Age: 67 Year
  Sex: Male
  Weight: 111.38 kg

DRUGS (15)
  1. ALLOPURINOL [Concomitant]
     Dosage: UNK
  2. DIOVAN [Concomitant]
  3. VALCYTE [Concomitant]
  4. SULFAMETHOXAZOLE [Concomitant]
  5. ZEMPLAR [Concomitant]
  6. PROCRIT [Suspect]
     Dosage: 20000 IU, QWK
     Dates: start: 20110127
  7. ACCUPRIL [Concomitant]
  8. URSODIOL [Concomitant]
  9. PROCRIT [Suspect]
     Dosage: 20000 IU, Q2WK
     Route: 058
     Dates: start: 20091201, end: 20100202
  10. PROCRIT [Suspect]
     Dosage: 20000 IU, UNK
     Route: 058
     Dates: start: 20100202, end: 20101120
  11. TRIMETOPRIM                        /00158501/ [Concomitant]
  12. PROCRIT [Suspect]
     Indication: NEPHROGENIC ANAEMIA
     Dosage: 10000 IU, QWK
     Route: 058
     Dates: start: 20090608, end: 20091201
  13. FLAGYL [Concomitant]
  14. NEORAL [Concomitant]
  15. CELLCEPT [Concomitant]

REACTIONS (17)
  - HYPERPARATHYROIDISM [None]
  - KARYOTYPE ANALYSIS ABNORMAL [None]
  - ABDOMINAL PAIN LOWER [None]
  - RETICULOCYTE COUNT DECREASED [None]
  - LEUKOPENIA [None]
  - CYTOMEGALOVIRUS COLITIS [None]
  - THERAPEUTIC RESPONSE DECREASED [None]
  - MYELODYSPLASTIC SYNDROME [None]
  - MYELOPROLIFERATIVE DISORDER [None]
  - MONOCLONAL IMMUNOGLOBULIN PRESENT [None]
  - BONE MARROW RETICULIN FIBROSIS [None]
  - GASTROINTESTINAL HAEMORRHAGE [None]
  - PARAPROTEINAEMIA [None]
  - OEDEMA [None]
  - RENAL FAILURE CHRONIC [None]
  - ANAEMIA [None]
  - FATIGUE [None]
